FAERS Safety Report 24781568 (Version 3)
Quarter: 2024Q4

REPORT INFORMATION
  Report Type: Spontaneous
  Country: US (occurrence: US)
  Receive Date: 20241227
  Receipt Date: 20241231
  Transmission Date: 20250115
  Serious: Yes (Death)
  Sender: ROCHE
  Company Number: US-ROCHE-10000167829

PATIENT
  Age: 74 Year
  Sex: Female
  Weight: 58.1 kg

DRUGS (2)
  1. TNKASE [Suspect]
     Active Substance: TENECTEPLASE
     Indication: Thrombotic stroke
     Dosage: LAST DOSE 23-DEC-2024
     Route: 042
     Dates: start: 20241223, end: 20241223
  2. TNKASE [Suspect]
     Active Substance: TENECTEPLASE
     Indication: Haemorrhagic stroke

REACTIONS (2)
  - Off label use [Unknown]
  - Thrombotic stroke [Fatal]

NARRATIVE: CASE EVENT DATE: 20241223
